FAERS Safety Report 15386080 (Version 1)
Quarter: 2018Q3

REPORT INFORMATION
  Report Type: Spontaneous
  Country: TW (occurrence: TW)
  Receive Date: 20180914
  Receipt Date: 20180914
  Transmission Date: 20181010
  Serious: Yes (Hospitalization, Other)
  Sender: FDA-Public Use
  Company Number: TW-ACTELION-A-CH2018-178627

PATIENT
  Age: 48 Year
  Sex: Male

DRUGS (2)
  1. TRACLEER [Suspect]
     Active Substance: BOSENTAN
     Indication: PULMONARY ARTERIAL HYPERTENSION
     Dosage: UNK
     Route: 048
     Dates: start: 201006
  2. ADEMPAS [Concomitant]
     Active Substance: RIOCIGUAT
     Indication: PULMONARY ARTERIAL HYPERTENSION
     Dosage: UNK
     Dates: start: 2013

REACTIONS (5)
  - Asthma [Unknown]
  - Pneumonia [Unknown]
  - Dyspnoea [Unknown]
  - Haemoptysis [Unknown]
  - Right ventricular failure [Unknown]

NARRATIVE: CASE EVENT DATE: 201804
